FAERS Safety Report 5606030-6 (Version None)
Quarter: 2008Q1

REPORT INFORMATION
  Report Type: 
  Country: None (occurrence: None)
  Receive Date: 20080123
  Receipt Date: 20080123
  Transmission Date: 20080703
  Serious: Yes (Hospitalization)
  Sender: FDA-Public Use
  Company Number: None

PATIENT
  Age: 40 Year
  Sex: Female
  Weight: 120.2032 kg

DRUGS (2)
  1. LEVAQUIN [Suspect]
     Indication: BRONCHITIS
     Dosage: 1 PILL DAILY PO
     Route: 048
     Dates: start: 20080103, end: 20080105
  2. LEVAQUIN [Suspect]
     Indication: SINUSITIS
     Dosage: 1 PILL DAILY PO
     Route: 048
     Dates: start: 20080103, end: 20080105

REACTIONS (10)
  - ARTHRALGIA [None]
  - DIZZINESS [None]
  - DRUG HYPERSENSITIVITY [None]
  - EYE SWELLING [None]
  - HEADACHE [None]
  - LOSS OF CONSCIOUSNESS [None]
  - MIGRAINE [None]
  - OCULAR HYPERAEMIA [None]
  - ORTHOSTATIC HYPOTENSION [None]
  - SYNCOPE [None]
